FAERS Safety Report 12322821 (Version 1)
Quarter: 2016Q2

REPORT INFORMATION
  Report Type: Spontaneous
  Country: US (occurrence: US)
  Receive Date: 20160502
  Receipt Date: 20160502
  Transmission Date: 20160815
  Serious: No
  Sender: FDA-Public Use
  Company Number: US-ASTRAZENECA-2016SE44021

PATIENT
  Age: 19788 Day
  Sex: Female
  Weight: 64.4 kg

DRUGS (1)
  1. BYDUREON [Suspect]
     Active Substance: EXENATIDE
     Indication: TYPE 2 DIABETES MELLITUS
     Route: 058
     Dates: start: 20160307, end: 20160323

REACTIONS (12)
  - Chills [Recovered/Resolved]
  - Vomiting [Recovered/Resolved]
  - Nausea [Recovered/Resolved]
  - Headache [Recovered/Resolved]
  - Arthralgia [Recovered/Resolved]
  - Injection site nodule [Not Recovered/Not Resolved]
  - Insomnia [Recovered/Resolved]
  - Renal injury [Recovered/Resolved]
  - Pain [Recovered/Resolved]
  - Blood glucose increased [Recovered/Resolved]
  - Retching [Recovered/Resolved]
  - Blood glucose decreased [Recovered/Resolved]

NARRATIVE: CASE EVENT DATE: 20160307
